FAERS Safety Report 17514002 (Version 1)
Quarter: 2020Q1

REPORT INFORMATION
  Report Type: Spontaneous
  Country: AT (occurrence: AT)
  Receive Date: 20200306
  Receipt Date: 20200306
  Transmission Date: 20200409
  Serious: Yes (Death)
  Sender: FDA-Public Use
  Company Number: NVSC2020AT064395

PATIENT
  Sex: Female

DRUGS (1)
  1. MEKINIST [Suspect]
     Active Substance: TRAMETINIB DIMETHYL SULFOXIDE
     Indication: ABDOMINAL NEOPLASM
     Dosage: 2 MG, QD
     Route: 065
     Dates: start: 20200214

REACTIONS (2)
  - Product use in unapproved indication [Unknown]
  - Abdominal neoplasm [Fatal]

NARRATIVE: CASE EVENT DATE: 20200214
